FAERS Safety Report 11124181 (Version 2)
Quarter: 2015Q2

REPORT INFORMATION
  Report Type: Spontaneous
  Country: DE (occurrence: DE)
  Receive Date: 20150520
  Receipt Date: 20150623
  Transmission Date: 20150821
  Serious: Yes (Disabling, Other)
  Sender: FDA-Public Use
  Company Number: DE-ROCHE-1579837

PATIENT
  Age: 57 Year
  Sex: Female
  Weight: 55 kg

DRUGS (2)
  1. ROACTEMRA [Suspect]
     Active Substance: TOCILIZUMAB
     Indication: POLYARTHRITIS
     Route: 058
     Dates: start: 201410
  2. SYNTESTAN [Concomitant]
     Indication: RHEUMATOID ARTHRITIS
     Route: 065

REACTIONS (2)
  - Maculopathy [Unknown]
  - Macular oedema [Not Recovered/Not Resolved]

NARRATIVE: CASE EVENT DATE: 20150428
